FAERS Safety Report 25114696 (Version 2)
Quarter: 2025Q2

REPORT INFORMATION
  Report Type: Spontaneous
  Country: PL (occurrence: PL)
  Receive Date: 20250324
  Receipt Date: 20250401
  Transmission Date: 20250717
  Serious: Yes (Other)
  Sender: MYLAN
  Company Number: PL-SUN PHARMACEUTICAL INDUSTRIES LTD-2025RR-498086

PATIENT
  Age: 62 Year
  Sex: Female
  Weight: 90 kg

DRUGS (64)
  1. PANTOPRAZOLE [Suspect]
     Active Substance: PANTOPRAZOLE
     Indication: Colorectal cancer
  2. PANTOPRAZOLE [Suspect]
     Active Substance: PANTOPRAZOLE
     Route: 048
  3. PANTOPRAZOLE [Suspect]
     Active Substance: PANTOPRAZOLE
     Route: 048
  4. PANTOPRAZOLE [Suspect]
     Active Substance: PANTOPRAZOLE
  5. IRINOTECAN [Interacting]
     Active Substance: IRINOTECAN
     Indication: Colon cancer
  6. IRINOTECAN [Interacting]
     Active Substance: IRINOTECAN
     Route: 042
  7. IRINOTECAN [Interacting]
     Active Substance: IRINOTECAN
     Route: 042
  8. IRINOTECAN [Interacting]
     Active Substance: IRINOTECAN
  9. ONDANSETRON [Suspect]
     Active Substance: ONDANSETRON
     Indication: Colorectal cancer
  10. ONDANSETRON [Suspect]
     Active Substance: ONDANSETRON
     Route: 042
  11. ONDANSETRON [Suspect]
     Active Substance: ONDANSETRON
     Route: 042
  12. ONDANSETRON [Suspect]
     Active Substance: ONDANSETRON
  13. DICLOFENAC [Suspect]
     Active Substance: DICLOFENAC
     Indication: Pain
  14. DICLOFENAC [Suspect]
     Active Substance: DICLOFENAC
     Indication: Burning sensation
     Route: 065
  15. DICLOFENAC [Suspect]
     Active Substance: DICLOFENAC
     Indication: Hypoaesthesia
     Route: 065
  16. DICLOFENAC [Suspect]
     Active Substance: DICLOFENAC
  17. BEVACIZUMAB [Interacting]
     Active Substance: BEVACIZUMAB
     Indication: Colon cancer
  18. BEVACIZUMAB [Interacting]
     Active Substance: BEVACIZUMAB
     Route: 042
  19. BEVACIZUMAB [Interacting]
     Active Substance: BEVACIZUMAB
     Route: 042
  20. BEVACIZUMAB [Interacting]
     Active Substance: BEVACIZUMAB
  21. LEUCOVORIN CALCIUM [Interacting]
     Active Substance: LEUCOVORIN CALCIUM
     Indication: Colon cancer
  22. LEUCOVORIN CALCIUM [Interacting]
     Active Substance: LEUCOVORIN CALCIUM
     Route: 042
  23. LEUCOVORIN CALCIUM [Interacting]
     Active Substance: LEUCOVORIN CALCIUM
     Route: 042
  24. LEUCOVORIN CALCIUM [Interacting]
     Active Substance: LEUCOVORIN CALCIUM
  25. ESCITALOPRAM [Interacting]
     Active Substance: ESCITALOPRAM OXALATE
     Indication: Depression
     Dosage: 10 MILLIGRAM, QD (1-0-0)
  26. ESCITALOPRAM [Interacting]
     Active Substance: ESCITALOPRAM OXALATE
     Dosage: 10 MILLIGRAM, QD (1-0-0)
     Route: 065
  27. ESCITALOPRAM [Interacting]
     Active Substance: ESCITALOPRAM OXALATE
     Dosage: 10 MILLIGRAM, QD (1-0-0)
     Route: 065
  28. ESCITALOPRAM [Interacting]
     Active Substance: ESCITALOPRAM OXALATE
     Dosage: 10 MILLIGRAM, QD (1-0-0)
  29. FLUOROURACIL [Interacting]
     Active Substance: FLUOROURACIL
     Indication: Colon cancer
  30. FLUOROURACIL [Interacting]
     Active Substance: FLUOROURACIL
  31. FLUOROURACIL [Interacting]
     Active Substance: FLUOROURACIL
     Route: 042
  32. FLUOROURACIL [Interacting]
     Active Substance: FLUOROURACIL
     Route: 042
  33. FLUOROURACIL [Interacting]
     Active Substance: FLUOROURACIL
  34. FLUOROURACIL [Interacting]
     Active Substance: FLUOROURACIL
  35. FLUOROURACIL [Interacting]
     Active Substance: FLUOROURACIL
     Route: 042
  36. FLUOROURACIL [Interacting]
     Active Substance: FLUOROURACIL
     Route: 042
  37. ATROPINE [Suspect]
     Active Substance: ATROPINE
     Indication: Colorectal cancer
  38. ATROPINE [Suspect]
     Active Substance: ATROPINE
     Route: 058
  39. ATROPINE [Suspect]
     Active Substance: ATROPINE
     Route: 058
  40. ATROPINE [Suspect]
     Active Substance: ATROPINE
  41. DECADRON (DEXAMETHASONE SODIUM PHOSPHATE) [Suspect]
     Active Substance: DEXAMETHASONE SODIUM PHOSPHATE
     Indication: Colorectal cancer
  42. DECADRON (DEXAMETHASONE SODIUM PHOSPHATE) [Suspect]
     Active Substance: DEXAMETHASONE SODIUM PHOSPHATE
     Route: 042
  43. DECADRON (DEXAMETHASONE SODIUM PHOSPHATE) [Suspect]
     Active Substance: DEXAMETHASONE SODIUM PHOSPHATE
     Route: 042
  44. DECADRON (DEXAMETHASONE SODIUM PHOSPHATE) [Suspect]
     Active Substance: DEXAMETHASONE SODIUM PHOSPHATE
  45. LEUCOVORIN [Suspect]
     Active Substance: LEUCOVORIN\LEUCOVORIN CALCIUM
     Indication: Colorectal cancer
  46. LEUCOVORIN [Suspect]
     Active Substance: LEUCOVORIN\LEUCOVORIN CALCIUM
     Route: 042
  47. LEUCOVORIN [Suspect]
     Active Substance: LEUCOVORIN\LEUCOVORIN CALCIUM
     Route: 042
  48. LEUCOVORIN [Suspect]
     Active Substance: LEUCOVORIN\LEUCOVORIN CALCIUM
  49. BISOPROLOL [Concomitant]
     Active Substance: BISOPROLOL
     Dosage: 2.5 MILLIGRAM, QD, BISOPROLOL 5 MG 0.5-0-0
  50. BISOPROLOL [Concomitant]
     Active Substance: BISOPROLOL
     Dosage: 2.5 MILLIGRAM, QD, BISOPROLOL 5 MG 0.5-0-0
     Route: 065
  51. BISOPROLOL [Concomitant]
     Active Substance: BISOPROLOL
     Dosage: 2.5 MILLIGRAM, QD, BISOPROLOL 5 MG 0.5-0-0
     Route: 065
  52. BISOPROLOL [Concomitant]
     Active Substance: BISOPROLOL
     Dosage: 2.5 MILLIGRAM, QD, BISOPROLOL 5 MG 0.5-0-0
  53. GALANTAMINE [Concomitant]
     Active Substance: GALANTAMINE
     Indication: Neuropathy peripheral
  54. GALANTAMINE [Concomitant]
     Active Substance: GALANTAMINE
     Route: 065
  55. GALANTAMINE [Concomitant]
     Active Substance: GALANTAMINE
     Route: 065
  56. GALANTAMINE [Concomitant]
     Active Substance: GALANTAMINE
  57. LEVOTHYROXINE [Concomitant]
     Active Substance: LEVOTHYROXINE
     Dosage: 125 MICROGRAM, QD, 125 MCG 1-0-0
  58. LEVOTHYROXINE [Concomitant]
     Active Substance: LEVOTHYROXINE
     Dosage: 125 MICROGRAM, QD, 125 MCG 1-0-0
     Route: 065
  59. LEVOTHYROXINE [Concomitant]
     Active Substance: LEVOTHYROXINE
     Dosage: 125 MICROGRAM, QD, 125 MCG 1-0-0
     Route: 065
  60. LEVOTHYROXINE [Concomitant]
     Active Substance: LEVOTHYROXINE
     Dosage: 125 MICROGRAM, QD, 125 MCG 1-0-0
  61. ASCORBIC ACID [Concomitant]
     Active Substance: ASCORBIC ACID
  62. ASCORBIC ACID [Concomitant]
     Active Substance: ASCORBIC ACID
     Route: 048
  63. ASCORBIC ACID [Concomitant]
     Active Substance: ASCORBIC ACID
     Route: 048
  64. ASCORBIC ACID [Concomitant]
     Active Substance: ASCORBIC ACID

REACTIONS (4)
  - Hyponatraemia [Unknown]
  - Neuropathy peripheral [Unknown]
  - Drug interaction [Unknown]
  - Underdose [Unknown]
